FAERS Safety Report 7864876-8 (Version None)
Quarter: 2011Q4

REPORT INFORMATION
  Report Type: 
  Country: None (occurrence: None)
  Receive Date: 20111028
  Receipt Date: 20100909
  Transmission Date: 20120403
  Serious: No
  Sender: FDA-Public Use
  Company Number: US-GLAXOSMITHKLINE-A0880525A

PATIENT
  Age: 53 Year
  Sex: Male

DRUGS (7)
  1. ZANAFLEX [Concomitant]
  2. SPIRIVA [Concomitant]
  3. CELEBREX [Concomitant]
  4. OXYCONTIN [Concomitant]
  5. ADVAIR DISKUS 100/50 [Suspect]
     Indication: ASTHMA
     Dosage: 1PUFF PER DAY
     Route: 055
     Dates: start: 20100101, end: 20100101
  6. BACLOFEN [Concomitant]
  7. XANAX [Concomitant]

REACTIONS (6)
  - TREMOR [None]
  - ORAL FUNGAL INFECTION [None]
  - DRY MOUTH [None]
  - NERVOUSNESS [None]
  - INSOMNIA [None]
  - OROPHARYNGEAL PAIN [None]
